FAERS Safety Report 12843234 (Version 2)
Quarter: 2016Q4

REPORT INFORMATION
  Report Type: Spontaneous
  Country: VE (occurrence: VE)
  Receive Date: 20161013
  Receipt Date: 20161122
  Transmission Date: 20170207
  Serious: Yes (Other)
  Sender: FDA-Public Use
  Company Number: VE-GLAXOSMITHKLINE-VE2016GSK148053

PATIENT
  Sex: Male
  Weight: 40 kg

DRUGS (1)
  1. SALBUTAN [Suspect]
     Active Substance: ALBUTEROL SULFATE
     Indication: ASTHMA
     Dosage: 100 ?G, UNK
     Route: 055

REACTIONS (2)
  - Product availability issue [Unknown]
  - Asthmatic crisis [Not Recovered/Not Resolved]
